FAERS Safety Report 4346914-2 (Version None)
Quarter: 2004Q1

REPORT INFORMATION
  Report Type: 
  Country: None (occurrence: None)
  Receive Date: 20040329
  Receipt Date: 20040209
  Transmission Date: 20041129
  Serious: No
  Sender: FDA-Public Use
  Company Number: USA040258882

PATIENT
  Age: 8 Year
  Sex: Male
  Weight: 36 kg

DRUGS (1)
  1. STRATTERA [Suspect]
     Dates: start: 20031001

REACTIONS (4)
  - DECREASED APPETITE [None]
  - HAIR COLOUR CHANGES [None]
  - HEADACHE [None]
  - NAUSEA [None]
